FAERS Safety Report 9785272 (Version 1)
Quarter: 2013Q4

REPORT INFORMATION
  Report Type: Spontaneous
  Country: US (occurrence: None)
  Receive Date: 20131226
  Receipt Date: 20131226
  Transmission Date: 20140711
  Serious: Yes (Death, Hospitalization)
  Sender: FDA-Public Use
  Company Number: None

PATIENT
  Age: 76 Year
  Sex: Female
  Weight: 78.02 kg

DRUGS (20)
  1. PONATINIB [Suspect]
     Indication: ACUTE LYMPHOCYTIC LEUKAEMIA
     Route: 048
     Dates: start: 20131126, end: 20131202
  2. ACYCLOVIR [Concomitant]
  3. VENTOLIN [Concomitant]
  4. DECADRON [Concomitant]
  5. SULFAMETHOXAZOLE-TRIMETHOPRIM [Concomitant]
  6. DURAGESIC [Concomitant]
  7. ADVAIR DISKUS [Concomitant]
  8. LASIX [Concomitant]
  9. NEURONTIN [Concomitant]
  10. ZOLOFT [Concomitant]
  11. ANUSOL HC [Concomitant]
  12. PHENERGAN [Concomitant]
  13. ATARAX [Concomitant]
  14. K-DUR;KLOR-CON [Concomitant]
  15. SYNTHROID [Concomitant]
  16. PERCOCET [Concomitant]
  17. LISINOPRIL [Concomitant]
  18. ZOFRAN [Concomitant]
  19. ATIVAN [Concomitant]
  20. NAPROSYN [Concomitant]

REACTIONS (6)
  - Diverticulitis [None]
  - Leukocytosis [None]
  - Thrombocytopenia [None]
  - Infectious colitis [None]
  - Colitis ischaemic [None]
  - Clostridium difficile colitis [None]
